FAERS Safety Report 7587294-9 (Version None)
Quarter: 2011Q3

REPORT INFORMATION
  Report Type: 
  Country: None (occurrence: None)
  Receive Date: 20110701
  Receipt Date: 20110701
  Transmission Date: 20111222
  Serious: Yes (Other)
  Sender: FDA-Public Use
  Company Number: IT-ABBOTT-11P-083-0733180-00

PATIENT
  Sex: Female

DRUGS (2)
  1. KETOPROFEN [Suspect]
     Indication: PRODUCT USED FOR UNKNOWN INDICATION
     Route: 048
     Dates: start: 20110611, end: 20110612
  2. CLARITHROMYCIN [Suspect]
     Indication: DENTAL OPERATION
     Dates: start: 20110611, end: 20110612

REACTIONS (2)
  - TONGUE OEDEMA [None]
  - DYSPNOEA [None]
